FAERS Safety Report 16729385 (Version 2)
Quarter: 2019Q3

REPORT INFORMATION
  Report Type: Report from Study
  Country: US (occurrence: US)
  Receive Date: 20190822
  Receipt Date: 20190919
  Transmission Date: 20191005
  Serious: Yes (Other)
  Sender: FDA-Public Use
  Company Number: US-JNJFOC-20190819078

PATIENT

DRUGS (4)
  1. ADALIMUMAB [Suspect]
     Active Substance: ADALIMUMAB
     Indication: PSORIASIS
     Route: 065
  2. ETANERCEPT [Suspect]
     Active Substance: ETANERCEPT
     Indication: PSORIASIS
     Route: 065
  3. STELARA [Suspect]
     Active Substance: USTEKINUMAB
     Indication: PSORIASIS
     Route: 058
  4. REMICADE [Suspect]
     Active Substance: INFLIXIMAB
     Indication: PSORIASIS
     Route: 042

REACTIONS (18)
  - Cough [Unknown]
  - Lymphoma [Unknown]
  - Hyperlipidaemia [Unknown]
  - Blood alkaline phosphatase increased [Unknown]
  - Urinary tract infection [Unknown]
  - Breast cancer [Unknown]
  - Coronary artery disease [Unknown]
  - Sleep disorder [Unknown]
  - Depression [Unknown]
  - Haematuria [Unknown]
  - Respiratory failure [Unknown]
  - Skin cancer [Unknown]
  - Sinusitis [Unknown]
  - Hypertension [Unknown]
  - Dyspnoea [Unknown]
  - Arrhythmia [Unknown]
  - Anxiety disorder [Unknown]
  - Upper respiratory tract infection [Unknown]
